FAERS Safety Report 5961318-4 (Version None)
Quarter: 2008Q4

REPORT INFORMATION
  Report Type: 
  Country: None (occurrence: None)
  Receive Date: 20081121
  Receipt Date: 20081113
  Transmission Date: 20090506
  Serious: Yes (Hospitalization, Other)
  Sender: FDA-Public Use
  Company Number: US-AMGEN-QUU300706

PATIENT
  Sex: Female
  Weight: 61.3 kg

DRUGS (4)
  1. ENBREL [Suspect]
     Indication: RHEUMATOID ARTHRITIS
     Route: 058
     Dates: start: 20060710
  2. VITAMIN TAB [Concomitant]
     Route: 048
     Dates: start: 20070725
  3. FOLIC ACID [Concomitant]
     Route: 048
     Dates: start: 20040501, end: 20080601
  4. TEGRETOL [Concomitant]
     Route: 048
     Dates: start: 19960601

REACTIONS (2)
  - ABORTION SPONTANEOUS [None]
  - CEPHALO-PELVIC DISPROPORTION [None]
